FAERS Safety Report 6838436-1 (Version None)
Quarter: 2010Q3

REPORT INFORMATION
  Report Type: 
  Country: None (occurrence: None)
  Receive Date: 20100713
  Receipt Date: 20070610
  Transmission Date: 20110219
  Serious: No
  Sender: FDA-Public Use
  Company Number: US-PFIZER INC-2007047878

PATIENT
  Sex: Female
  Weight: 54.4 kg

DRUGS (11)
  1. CHANTIX [Suspect]
     Indication: SMOKING CESSATION THERAPY
     Dates: start: 20070602
  2. INSULIN INJECTION [Concomitant]
  3. ENALAPRIL [Concomitant]
  4. TRICOR [Concomitant]
  5. COREG [Concomitant]
  6. ACETYLSALICYLIC ACID [Concomitant]
  7. TOPROL-XL [Concomitant]
  8. VYTORIN [Concomitant]
  9. GLUCOPHAGE [Concomitant]
  10. LANTUS [Concomitant]
  11. ALL OTHER THERAPEUTIC PRODUCTS [Concomitant]

REACTIONS (3)
  - DECREASED APPETITE [None]
  - NAUSEA [None]
  - VOMITING [None]
